FAERS Safety Report 23158727 (Version 1)
Quarter: 2023Q4

REPORT INFORMATION
  Report Type: Spontaneous
  Country: US (occurrence: None)
  Receive Date: 20231106
  Receipt Date: 20231106
  Transmission Date: 20240110
  Serious: Yes (Hospitalization)
  Sender: FDA-Public Use
  Company Number: None

PATIENT
  Sex: Male

DRUGS (2)
  1. NOVOEIGHT [Suspect]
     Active Substance: ANTIHEMOPHILIC FACTOR, HUMAN RECOMBINANT
     Indication: Acquired haemophilia
     Dosage: FREQUENCY : AS NEEDED;?
     Route: 042
     Dates: start: 202302
  2. NOVOEIGHT [Suspect]
     Active Substance: ANTIHEMOPHILIC FACTOR, HUMAN RECOMBINANT
     Indication: Acquired haemophilia
     Dosage: FREQUENCY : AS NEEDED;?
     Route: 042
     Dates: start: 202302

REACTIONS (2)
  - Haemorrhage [None]
  - Condition aggravated [None]
